FAERS Safety Report 15308270 (Version 2)
Quarter: 2018Q4

REPORT INFORMATION
  Report Type: Report from Study
  Country: FR (occurrence: FR)
  Receive Date: 20180822
  Receipt Date: 20181004
  Transmission Date: 20190204
  Serious: Yes (Hospitalization)
  Sender: FDA-Public Use
  Company Number: FR-ASTRAZENECA-2018SF01938

PATIENT
  Age: 58 Year
  Sex: Male

DRUGS (2)
  1. MEDI4736 [Suspect]
     Active Substance: DURVALUMAB
     Indication: NON-SMALL CELL LUNG CANCER
     Route: 042
     Dates: start: 20171006
  2. PRISTINAMYCIN [Concomitant]
     Active Substance: PRISTINAMYCIN
     Route: 065
     Dates: start: 20180803, end: 20180806

REACTIONS (4)
  - Abdominal pain [Recovered/Resolved]
  - Colitis [Recovered/Resolved]
  - Diarrhoea [Recovered/Resolved]
  - Vomiting [Recovered/Resolved]

NARRATIVE: CASE EVENT DATE: 20180802
